FAERS Safety Report 18559312 (Version 1)
Quarter: 2020Q4

REPORT INFORMATION
  Report Type: Spontaneous
  Country: US (occurrence: US)
  Receive Date: 20201126
  Receipt Date: 20201126
  Transmission Date: 20210114
  Serious: Yes (Hospitalization)
  Sender: FDA-Public Use
  Company Number: None

PATIENT
  Age: 77 Year
  Sex: Female
  Weight: 67.6 kg

DRUGS (6)
  1. ETOPOSIDE (VP-16) 85MG [Suspect]
     Active Substance: ETOPOSIDE
  2. PREDNISONE 100MG [Suspect]
     Active Substance: PREDNISONE
  3. VINCRISTINE SULFATE .7MG [Suspect]
     Active Substance: VINCRISTINE SULFATE
  4. RITUXIMAB (MOAB C2B8 ANTI CD20, CHIMERIC) 600MG [Suspect]
     Active Substance: RITUXIMAB
  5. CYCLOPHOSPHAMIDE 1260MG [Suspect]
     Active Substance: CYCLOPHOSPHAMIDE
  6. DOXORUBICIN HYDROCHLORIDE 17MG [Suspect]
     Active Substance: DOXORUBICIN HYDROCHLORIDE

REACTIONS (7)
  - Dysuria [None]
  - Oral pain [None]
  - Heart rate increased [None]
  - Dysphagia [None]
  - Neutrophil count decreased [None]
  - Nausea [None]
  - Pyrexia [None]

NARRATIVE: CASE EVENT DATE: 20201005
